FAERS Safety Report 9031480 (Version 3)
Quarter: 2013Q1

REPORT INFORMATION
  Report Type: Spontaneous
  Country: US (occurrence: US)
  Receive Date: 20130124
  Receipt Date: 20130212
  Transmission Date: 20140127
  Serious: Yes (Other)
  Sender: FDA-Public Use
  Company Number: US-JNJFOC-20130110111

PATIENT
  Age: 45 Year
  Sex: Female
  Weight: 58.97 kg

DRUGS (2)
  1. ZYRTEC IR [Suspect]
     Route: 048
  2. ZYRTEC IR [Suspect]
     Indication: MASTOCYTOSIS
     Dosage: SPLITTING TABLETS TO TAKE 5MG IN MORNING AND 5 MG AT NIGHT, FOR ABOUT 6 WEEKS
     Route: 048
     Dates: start: 20121205, end: 20130114

REACTIONS (3)
  - Cholesteatoma [Unknown]
  - Wrong technique in drug usage process [Unknown]
  - Off label use [Unknown]
